FAERS Safety Report 8568811 (Version 5)
Quarter: 2013Q1

REPORT INFORMATION
  Report Type: Report from Study
  Country: US (occurrence: US)
  Receive Date: 20120518
  Receipt Date: 20130313
  Transmission Date: 20140127
  Serious: Yes (Hospitalization, Other)
  Sender: FDA-Public Use
  Company Number: US-BRISTOL-MYERS SQUIBB COMPANY-16544827

PATIENT
  Age: 64 Year
  Sex: Male
  Weight: 92 kg

DRUGS (3)
  1. IPILIMUMAB [Suspect]
     Indication: MALIGNANT MELANOMA
     Dosage: LAST DOSE ON 06APR2012,4MAY12,28AUG12 928MG
     Route: 042
     Dates: start: 20120406
  2. HYDROCORTISONE [Concomitant]
  3. LEVOTHYROXINE [Concomitant]

REACTIONS (4)
  - Diarrhoea [Recovered/Resolved]
  - Hypophysitis [Recovered/Resolved]
  - Nausea [Recovered/Resolved]
  - Hypophosphataemia [Not Recovered/Not Resolved]
